FAERS Safety Report 18120853 (Version 2)
Quarter: 2020Q3

REPORT INFORMATION
  Report Type: Spontaneous
  Country: CA (occurrence: CA)
  Receive Date: 20200806
  Receipt Date: 20200812
  Transmission Date: 20201103
  Serious: Yes (Other)
  Sender: FDA-Public Use
  Company Number: CA-PFIZER INC-2020296201

PATIENT
  Age: 79 Year
  Sex: Male

DRUGS (7)
  1. CORTISONE [Suspect]
     Active Substance: CORTISONE
     Dosage: 10 MG, 1X/DAY (TO DECREASE TO 5 MG OD ON 07AUG2020)
     Route: 048
     Dates: start: 202007
  2. VITAMIN B12 [VITAMIN B12 NOS] [Suspect]
     Active Substance: CYANOCOBALAMIN
     Dosage: UNK
     Route: 048
  3. VITAMIN D [VITAMIN D NOS] [Suspect]
     Active Substance: VITAMIN D NOS
     Dosage: UNK
     Route: 048
  4. XELJANZ XR [Concomitant]
     Active Substance: TOFACITINIB CITRATE
     Indication: RHEUMATOID ARTHRITIS
     Dosage: 11 MG, 1X/DAY
     Route: 048
     Dates: start: 20200731
  5. ELIQUIS [Suspect]
     Active Substance: APIXABAN
     Dosage: 5 MILLIGRAM, BID
     Route: 065
  6. METHOTREXATE. [Concomitant]
     Active Substance: METHOTREXATE
     Indication: RHEUMATOID ARTHRITIS
     Dosage: UNK (15)
     Route: 058
     Dates: start: 2019, end: 202006
  7. SULFASALAZINE. [Suspect]
     Active Substance: SULFASALAZINE
     Indication: RHEUMATOID ARTHRITIS
     Dosage: UNK, 2X/DAY (1.5)
     Route: 065
     Dates: start: 201911

REACTIONS (6)
  - Thrombocytopenia [Unknown]
  - Lymphadenopathy [Unknown]
  - Macrocytosis [Unknown]
  - Atrioventricular block [Unknown]
  - Drug ineffective [Unknown]
  - Pruritus [Unknown]
